FAERS Safety Report 15619004 (Version 1)
Quarter: 2018Q4

REPORT INFORMATION
  Report Type: Spontaneous
  Country: US (occurrence: US)
  Receive Date: 20181114
  Receipt Date: 20181114
  Transmission Date: 20190205
  Serious: Yes (Disabling)
  Sender: FDA-Public Use
  Company Number: None

PATIENT
  Age: 56 Year
  Sex: Male
  Weight: 92.25 kg

DRUGS (5)
  1. CYMBALTA [Concomitant]
     Active Substance: DULOXETINE HYDROCHLORIDE
  2. PAPAYA SEEDS [Concomitant]
  3. DULOXETINE. [Suspect]
     Active Substance: DULOXETINE
     Indication: PAIN
     Dosage: ?          QUANTITY:30 CAPSULE(S);?
     Route: 048
     Dates: start: 20161127, end: 20181023
  4. DULOXETINE. [Suspect]
     Active Substance: DULOXETINE
     Indication: MOOD SWINGS
     Dosage: ?          QUANTITY:30 CAPSULE(S);?
     Route: 048
     Dates: start: 20161127, end: 20181023
  5. HYDROCODONE BITARTRATE AND ACETAMINOPHEN [Concomitant]
     Active Substance: ACETAMINOPHEN\HYDROCODONE BITARTRATE

REACTIONS (11)
  - Gait disturbance [None]
  - Agitation [None]
  - Drug ineffective [None]
  - Drug withdrawal syndrome [None]
  - Disturbance in attention [None]
  - Dizziness [None]
  - Paraesthesia [None]
  - Tinnitus [None]
  - Balance disorder [None]
  - Personality change [None]
  - Anxiety [None]

NARRATIVE: CASE EVENT DATE: 20131018
